FAERS Safety Report 8459878-7 (Version None)
Quarter: 2012Q2

REPORT INFORMATION
  Report Type: 
  Country: None (occurrence: None)
  Receive Date: 20120622
  Receipt Date: 20120615
  Transmission Date: 20120825
  Serious: Yes (Other)
  Sender: FDA-Public Use
  Company Number: PHHY2012TW039167

PATIENT

DRUGS (1)
  1. TEGRETOL [Suspect]
     Dosage: 200 MG, UNK

REACTIONS (4)
  - DRUG PRESCRIBING ERROR [None]
  - FALL [None]
  - INJURY [None]
  - EPILEPSY [None]
